FAERS Safety Report 5920230-7 (Version None)
Quarter: 2008Q4

REPORT INFORMATION
  Report Type: 
  Country: None (occurrence: None)
  Receive Date: 20081014
  Receipt Date: 20080929
  Transmission Date: 20090506
  Serious: Yes (Other)
  Sender: FDA-Public Use
  Company Number: 2008US002474

PATIENT
  Age: 5 Year
  Sex: Male

DRUGS (3)
  1. FK463(MICAFUNGIN INJECTION) [Suspect]
     Indication: CANDIDIASIS
     Dosage: 74.7 MG, UID/QD, IV NOS
     Route: 042
     Dates: start: 20080912, end: 20080917
  2. EMPAPED FORMULATION UNKNOWN [Concomitant]
  3. PANADO FORMULATION UNKNOWN [Concomitant]

REACTIONS (1)
  - FEBRILE CONVULSION [None]
